FAERS Safety Report 16788024 (Version 1)
Quarter: 2019Q3

REPORT INFORMATION
  Report Type: Spontaneous
  Country: US (occurrence: US)
  Receive Date: 20190909
  Receipt Date: 20190909
  Transmission Date: 20191005
  Serious: Yes (Death)
  Sender: FDA-Public Use
  Company Number: PHEH2019US037054

PATIENT
  Sex: Male

DRUGS (1)
  1. ZARXIO [Suspect]
     Active Substance: FILGRASTIM-SNDZ
     Indication: ANAEMIA OF CHRONIC DISEASE
     Dosage: 0.5 ML, (NIGHTLY FOR 5 DAYS EVERY 21 DAYS)
     Route: 058

REACTIONS (1)
  - Death [Fatal]
